FAERS Safety Report 7672355-6 (Version None)
Quarter: 2011Q3

REPORT INFORMATION
  Report Type: 
  Country: None (occurrence: None)
  Receive Date: 20110809
  Receipt Date: 20110801
  Transmission Date: 20111222
  Serious: Yes (Other)
  Sender: FDA-Public Use
  Company Number: ES-BRISTOL-MYERS SQUIBB COMPANY-15953656

PATIENT
  Age: 37 Year
  Sex: Female

DRUGS (2)
  1. CYCLOPHOSPHAMIDE [Suspect]
     Indication: BREAST CANCER METASTATIC
  2. ADRIAMYCIN PFS [Suspect]
     Indication: BREAST CANCER METASTATIC

REACTIONS (2)
  - METAPLASIA [None]
  - DERMATITIS [None]
